FAERS Safety Report 17472203 (Version 4)
Quarter: 2020Q1

REPORT INFORMATION
  Report Type: Report from Study
  Country: BR (occurrence: BR)
  Receive Date: 20200228
  Receipt Date: 20200313
  Transmission Date: 20200409
  Serious: Yes (Hospitalization)
  Sender: FDA-Public Use
  Company Number: BR-ROCHE-2549703

PATIENT
  Age: 54 Year
  Sex: Female
  Weight: 55.1 kg

DRUGS (48)
  1. FAMOTIDINE. [Concomitant]
     Active Substance: FAMOTIDINE
     Route: 048
     Dates: start: 20200127, end: 20200127
  2. NOVALGINA [Concomitant]
     Active Substance: METAMIZOLE SODIUM
     Route: 042
     Dates: start: 20200227, end: 20200227
  3. ERYTHROMYCIN. [Concomitant]
     Active Substance: ERYTHROMYCIN
     Route: 042
     Dates: start: 20200226
  4. EMAMA [Concomitant]
     Active Substance: .ALPHA.-TOCOPHEROL ACETATE
     Route: 061
     Dates: start: 20200211
  5. SMOFKABIVEN [Concomitant]
     Active Substance: AMINO ACIDS\DEXTROSE\ELECTROLYTES NOS\SOYBEAN OIL
     Route: 042
     Dates: start: 20200218
  6. LUFTAL [SIMETICONE] [Concomitant]
     Route: 065
     Dates: start: 20200223, end: 20200223
  7. HIDRION [Concomitant]
     Active Substance: FUROSEMIDE\POTASSIUM CHLORIDE
     Dosage: DOSE: 40 MG/ 100 MG
     Route: 065
  8. CLEXANE [Concomitant]
     Active Substance: ENOXAPARIN SODIUM
     Route: 058
     Dates: start: 20200214, end: 20200218
  9. NOVALGINA [Concomitant]
     Active Substance: METAMIZOLE SODIUM
     Route: 042
     Dates: start: 20200220, end: 20200220
  10. OLIMEL [Concomitant]
     Active Substance: AMINO ACIDS\DEXTROSE\SOYBEAN OIL
     Dosage: 1000 ML (MILLILITER; CM3)
     Route: 042
     Dates: start: 20200213, end: 20200217
  11. PERIDAL [DOMPERIDONE] [Concomitant]
     Route: 048
     Dates: start: 20200219, end: 20200219
  12. TRAMADOL. [Concomitant]
     Active Substance: TRAMADOL
     Route: 042
     Dates: start: 20200216, end: 20200216
  13. PREDNISONE. [Concomitant]
     Active Substance: PREDNISONE
     Route: 048
     Dates: start: 20191219
  14. SCOPOLAMINE BUTYLBROMIDE [Concomitant]
     Active Substance: SCOPOLAMINE
     Route: 042
     Dates: start: 20200215, end: 20200215
  15. CERNE 12 [Concomitant]
     Active Substance: VITAMINS
     Route: 042
     Dates: start: 20200212, end: 20200212
  16. NYSTATIN. [Concomitant]
     Active Substance: NYSTATIN
     Route: 050
     Dates: start: 20200219, end: 20200227
  17. OLIMEL [Concomitant]
     Active Substance: AMINO ACIDS\DEXTROSE\SOYBEAN OIL
     Dosage: 1000 ML (MILLILITER; CM3
     Route: 042
     Dates: start: 20200211, end: 20200212
  18. PROBIATOP [Concomitant]
     Route: 048
     Dates: start: 20200216, end: 20200217
  19. INFLIXIMAB [Concomitant]
     Active Substance: INFLIXIMAB
     Route: 042
     Dates: start: 20200221, end: 20200221
  20. VITAMIN B1 [Concomitant]
     Active Substance: THIAMINE HYDROCHLORIDE
     Route: 042
     Dates: start: 20200215, end: 20200218
  21. DIPYRONE [Concomitant]
     Active Substance: DIPYRONE
     Route: 048
     Dates: start: 20190821
  22. DRAMAMINE [Concomitant]
     Active Substance: DIMENHYDRINATE
     Route: 042
     Dates: start: 20200218, end: 20200218
  23. METICORTEN [Concomitant]
     Active Substance: PREDNISONE
     Route: 048
     Dates: start: 20200211, end: 20200219
  24. PERIDAL [DOMPERIDONE] [Concomitant]
     Route: 048
     Dates: start: 20200211, end: 20200218
  25. MAGNESIUM SULFATE. [Concomitant]
     Active Substance: MAGNESIUM SULFATE
     Route: 048
     Dates: start: 20200211
  26. TIORFAN [Concomitant]
     Active Substance: RACECADOTRIL
     Route: 048
     Dates: start: 20200222, end: 20200223
  27. ATEZOLIZUMAB. [Suspect]
     Active Substance: ATEZOLIZUMAB
     Indication: RENAL CELL CARCINOMA
     Dosage: DATE OF MOST RECENT DOSE OF BLINDED ATEZOLIZUMAB PRIOR TO ADVERSE EVENT AND SERIOUS ADVERSE ONSET: 1
     Route: 041
     Dates: start: 20181026
  28. DOMPERIDONE [Concomitant]
     Active Substance: DOMPERIDONE
     Route: 048
     Dates: start: 20191220
  29. LUFTAL [SIMETICONE] [Concomitant]
     Route: 048
     Dates: start: 20200211, end: 20200217
  30. INFLIXIMAB [Concomitant]
     Active Substance: INFLIXIMAB
     Route: 042
     Dates: start: 20200127, end: 20200127
  31. POTASSIUM CHLORIDE. [Concomitant]
     Active Substance: POTASSIUM CHLORIDE
     Route: 048
     Dates: start: 20200211, end: 20200212
  32. HIDRION [Concomitant]
     Active Substance: FUROSEMIDE\POTASSIUM CHLORIDE
     Route: 048
     Dates: start: 20200211, end: 20200212
  33. LOSEC [Concomitant]
     Active Substance: OMEPRAZOLE
     Route: 048
     Dates: start: 20200212, end: 20200227
  34. OMEPRAZOLE. [Concomitant]
     Active Substance: OMEPRAZOLE
     Route: 048
     Dates: start: 20191220
  35. BROMOPRIDA [Concomitant]
     Route: 042
     Dates: start: 20200224, end: 20200225
  36. POTASSIUM CHLORIDE. [Concomitant]
     Active Substance: POTASSIUM CHLORIDE
     Route: 048
     Dates: start: 20200214, end: 20200218
  37. DRAMAMINE [Concomitant]
     Active Substance: DIMENHYDRINATE
     Route: 042
     Dates: start: 20200227, end: 20200227
  38. CERNE 12 [Concomitant]
     Active Substance: VITAMINS
     Route: 042
     Dates: start: 20200219
  39. CLEXANE [Concomitant]
     Active Substance: ENOXAPARIN SODIUM
     Route: 058
     Dates: start: 20200220
  40. LUFTAL [DIMETICONE] [Concomitant]
     Route: 048
     Dates: start: 20200217, end: 20200218
  41. METICORTEN [Concomitant]
     Active Substance: PREDNISONE
     Route: 048
     Dates: start: 20200221, end: 20200221
  42. PERIDAL [DOMPERIDONE] [Concomitant]
     Route: 048
     Dates: start: 20200220
  43. UNIMEDROL [Concomitant]
     Route: 042
     Dates: start: 20200221, end: 20200228
  44. LUFTAL [SIMETICONE] [Concomitant]
     Route: 048
     Dates: start: 20191220
  45. DIFENIDRIN [Concomitant]
     Active Substance: DIPHENHYDRAMINE
     Route: 042
     Dates: start: 20200127, end: 20200127
  46. CERNE 12 [Concomitant]
     Active Substance: VITAMINS
     Route: 042
     Dates: start: 20200213, end: 20200218
  47. OLIG TRAT [Concomitant]
     Dosage: 2 ML (MILLILITER; CM3)
     Route: 042
     Dates: start: 20200212, end: 20200228
  48. VITAMIN B1 [Concomitant]
     Active Substance: THIAMINE HYDROCHLORIDE
     Route: 042
     Dates: start: 20200212, end: 20200214

REACTIONS (1)
  - Malnutrition [Recovering/Resolving]

NARRATIVE: CASE EVENT DATE: 20200211
